FAERS Safety Report 20539015 (Version 1)
Quarter: 2022Q1

REPORT INFORMATION
  Report Type: Spontaneous
  Country: CA (occurrence: CA)
  Receive Date: 20220302
  Receipt Date: 20220302
  Transmission Date: 20220423
  Serious: Yes (Disabling, Other)
  Sender: FDA-Public Use
  Company Number: CA-JNJFOC-20211044090

PATIENT
  Age: 88 Year
  Sex: Female
  Weight: 59.020 kg

DRUGS (1)
  1. RISPERDAL [Suspect]
     Active Substance: RISPERIDONE
     Indication: Agitation
     Route: 048

REACTIONS (11)
  - Tremor [Not Recovered/Not Resolved]
  - Anal incontinence [Not Recovered/Not Resolved]
  - Cognitive disorder [Not Recovered/Not Resolved]
  - Gait inability [Not Recovered/Not Resolved]
  - Hallucination [Not Recovered/Not Resolved]
  - Muscle rigidity [Not Recovered/Not Resolved]
  - Muscular weakness [Not Recovered/Not Resolved]
  - Parkinsonism [Not Recovered/Not Resolved]
  - Sleep disorder [Not Recovered/Not Resolved]
  - Speech disorder [Not Recovered/Not Resolved]
  - Urinary incontinence [Not Recovered/Not Resolved]
